FAERS Safety Report 8416242-4 (Version None)
Quarter: 2012Q2

REPORT INFORMATION
  Report Type: 
  Country: None (occurrence: None)
  Receive Date: 20120606
  Receipt Date: 20120522
  Transmission Date: 20120825
  Serious: Yes (Hospitalization)
  Sender: FDA-Public Use
  Company Number: CH-ROCHE-1032553

PATIENT
  Sex: Female
  Weight: 78 kg

DRUGS (11)
  1. PANTOPRAZOLE [Concomitant]
     Indication: DYSPEPSIA
     Route: 048
  2. PEGASYS [Suspect]
     Indication: HEPATITIS C
     Route: 058
     Dates: start: 20111107, end: 20120416
  3. SURMONTIL [Concomitant]
     Route: 048
  4. COPEGUS [Suspect]
     Indication: HEPATITIS C
     Route: 048
     Dates: start: 20111107
  5. BLINDED BI 201335 (HCV PROTEASE INHIBITOR) [Suspect]
     Indication: HEPATITIS C
     Route: 048
     Dates: start: 20111107, end: 20120423
  6. COPEGUS [Suspect]
     Dosage: DOSE REDUCED
     Dates: end: 20120422
  7. IBEROGAST [Concomitant]
     Indication: NAUSEA
     Route: 048
     Dates: start: 20111021
  8. PASPERTIN [Concomitant]
     Indication: NAUSEA
     Route: 048
     Dates: start: 20111205, end: 20120510
  9. FLATULEX [Concomitant]
     Indication: FLATULENCE
     Dates: start: 20111021, end: 20120106
  10. EXFORGE [Concomitant]
     Indication: HYPERTENSION
     Dosage: 10/160/25 DAILY
     Route: 048
  11. PASPERTIN [Concomitant]

REACTIONS (19)
  - MONOCYTE PERCENTAGE INCREASED [None]
  - GASTRITIS [None]
  - ALANINE AMINOTRANSFERASE INCREASED [None]
  - JAUNDICE [None]
  - HAEMATOCRIT DECREASED [None]
  - ANXIETY [None]
  - WHITE BLOOD CELL COUNT DECREASED [None]
  - BLOOD BILIRUBIN INCREASED [None]
  - NAUSEA [None]
  - CHOLELITHIASIS [None]
  - RED BLOOD CELL COUNT DECREASED [None]
  - BLOOD POTASSIUM DECREASED [None]
  - DEPRESSION [None]
  - ASPARTATE AMINOTRANSFERASE INCREASED [None]
  - HAEMORRHOIDS [None]
  - TREATMENT FAILURE [None]
  - PSYCHIATRIC DECOMPENSATION [None]
  - HAEMOGLOBIN DECREASED [None]
  - GASTROENTERITIS [None]
